FAERS Safety Report 21611934 (Version 1)
Quarter: 2022Q4

REPORT INFORMATION
  Report Type: Report from Study
  Country: US (occurrence: US)
  Receive Date: 20221118
  Receipt Date: 20221118
  Transmission Date: 20230113
  Serious: Yes (Other)
  Sender: FDA-Public Use
  Company Number: US-002147023-NVSC2022US255960

PATIENT
  Sex: Female

DRUGS (1)
  1. COSENTYX [Suspect]
     Active Substance: SECUKINUMAB
     Indication: Psoriasis
     Dosage: 300 MG, QMO
     Route: 058
     Dates: start: 20200320, end: 202210

REACTIONS (7)
  - Symptom recurrence [Unknown]
  - Pain [Unknown]
  - Joint swelling [Unknown]
  - Gait inability [Unknown]
  - Discomfort [Unknown]
  - Skin lesion [Unknown]
  - Crying [Unknown]
